FAERS Safety Report 24832226 (Version 1)
Quarter: 2025Q1

REPORT INFORMATION
  Report Type: Spontaneous
  Country: US (occurrence: None)
  Receive Date: 20250110
  Receipt Date: 20250110
  Transmission Date: 20250408
  Serious: No
  Sender: FDA-CTU
  Company Number: None

PATIENT
  Age: 36 Year
  Sex: Female
  Weight: 103.05 kg

DRUGS (1)
  1. SEMAGLUTIDE [Suspect]
     Active Substance: SEMAGLUTIDE
     Indication: Weight decreased
     Route: 050
     Dates: start: 20241208, end: 20250105

REACTIONS (9)
  - Injection site erythema [None]
  - Injection site rash [None]
  - Injection site atrophy [None]
  - Injection site discolouration [None]
  - Injection site exfoliation [None]
  - Pruritus [None]
  - Hypersensitivity [None]
  - Herpes zoster [None]
  - Product quality issue [None]

NARRATIVE: CASE EVENT DATE: 20241210
